FAERS Safety Report 12207189 (Version 1)
Quarter: 2016Q1

REPORT INFORMATION
  Report Type: Spontaneous
  Country: US (occurrence: None)
  Receive Date: 20160323
  Receipt Date: 20160323
  Transmission Date: 20160526
  Serious: Yes (Hospitalization)
  Sender: FDA-Public Use
  Company Number: None

PATIENT
  Age: 43 Year
  Sex: Male

DRUGS (14)
  1. ASPIRIN. [Concomitant]
     Active Substance: ASPIRIN
  2. DOCUSATE [Concomitant]
     Active Substance: DOCUSATE
  3. TACROLIMUS. [Concomitant]
     Active Substance: TACROLIMUS
  4. POTASSIUM CHLORIDE. [Concomitant]
     Active Substance: POTASSIUM CHLORIDE
  5. SENNA [Concomitant]
     Active Substance: SENNA LEAF\SENNOSIDES\SENNOSIDES A AND B
  6. FLUCONAZOLE. [Suspect]
     Active Substance: FLUCONAZOLE
     Indication: BACTERAEMIA
     Route: 042
     Dates: start: 20160217, end: 20160222
  7. INSULIN ASPART [Concomitant]
     Active Substance: INSULIN ASPART
  8. MYCOPHENOLATE [Concomitant]
     Active Substance: MYCOPHENOLIC ACID
  9. PREDNISONE. [Concomitant]
     Active Substance: PREDNISONE
  10. CASPOFUNGIN [Concomitant]
     Active Substance: CASPOFUNGIN
  11. GANCICLOVIR. [Concomitant]
     Active Substance: GANCICLOVIR
  12. ACETAMINOPHEN. [Concomitant]
     Active Substance: ACETAMINOPHEN
  13. FUROSEMIDE. [Concomitant]
     Active Substance: FUROSEMIDE
  14. TRAZODONE [Concomitant]
     Active Substance: TRAZODONE HYDROCHLORIDE

REACTIONS (1)
  - Electrocardiogram QT prolonged [None]

NARRATIVE: CASE EVENT DATE: 20160221
